FAERS Safety Report 5677270-5 (Version None)
Quarter: 2008Q1

REPORT INFORMATION
  Report Type: 
  Country: None (occurrence: None)
  Receive Date: 20080324
  Receipt Date: 20080312
  Transmission Date: 20080703
  Serious: Yes (Death, Hospitalization)
  Sender: FDA-Public Use
  Company Number: ES-TEVA-168832ISR

PATIENT
  Age: 66 Year
  Sex: Female

DRUGS (4)
  1. DOXORUBICIN HCL [Suspect]
     Indication: HODGKIN'S DISEASE
  2. BLEOMYCIN [Suspect]
     Indication: HODGKIN'S DISEASE
  3. DEXAMETHASONE TAB [Suspect]
     Indication: HODGKIN'S DISEASE
  4. VINBLASTINE SULFATE [Suspect]
     Indication: HODGKIN'S DISEASE

REACTIONS (2)
  - ENCEPHALOPATHY [None]
  - HEPATITIS B VIRUS [None]
